FAERS Safety Report 24161639 (Version 1)
Quarter: 2024Q3

REPORT INFORMATION
  Report Type: Spontaneous
  Country: US (occurrence: None)
  Receive Date: 20240731
  Receipt Date: 20240731
  Transmission Date: 20241016
  Serious: No
  Sender: Public
  Company Number: None

PATIENT
  Age: 63 Year
  Sex: Female

DRUGS (1)
  1. ADBRY [Suspect]
     Active Substance: TRALOKINUMAB-LDRM
     Indication: Dermatitis atopic
     Dosage: INJECT 600MG (4 SYNRINGES) SUBCUTANEOUSLY ON DAY 1, THEN 300MG (2 SYRINGES) EVERY W WEEKS
     Route: 058
     Dates: start: 202405

REACTIONS (1)
  - Cardiac operation [None]
